FAERS Safety Report 5530098-9 (Version None)
Quarter: 2007Q4

REPORT INFORMATION
  Report Type: 
  Country: None (occurrence: None)
  Receive Date: 20071130
  Receipt Date: 20071123
  Transmission Date: 20080405
  Serious: Yes (Other)
  Sender: FDA-Public Use
  Company Number: PHBS2007BR19771

PATIENT
  Age: 79 Year
  Sex: Female
  Weight: 58 kg

DRUGS (3)
  1. FORASEQ [Suspect]
     Indication: ASTHMA
     Dosage: UNK, BID
  2. ENALAPRIL MALEATE [Concomitant]
     Dosage: 3 MG, QD
     Route: 048
  3. EUTHYROX [Concomitant]
     Dosage: 75 MG, QD
     Route: 048

REACTIONS (2)
  - DYSPHONIA [None]
  - THYROIDECTOMY [None]
